FAERS Safety Report 4368595-4 (Version None)
Quarter: 2004Q2

REPORT INFORMATION
  Report Type: 
  Country: None (occurrence: None)
  Receive Date: 20040528
  Receipt Date: 20040517
  Transmission Date: 20050107
  Serious: Yes (Disabling)
  Sender: FDA-Public Use
  Company Number: 2004CG00801

PATIENT
  Age: 42 Year
  Sex: Female

DRUGS (1)
  1. NAROPIN [Suspect]
     Indication: LOCAL ANAESTHESIA
     Dates: start: 20011112, end: 20011112

REACTIONS (3)
  - ANAESTHETIC COMPLICATION [None]
  - LESION OF SCIATIC NERVE [None]
  - SCIATIC NERVE PALSY [None]
